FAERS Safety Report 5905001-X (Version None)
Quarter: 2008Q4

REPORT INFORMATION
  Report Type: 
  Country: None (occurrence: None)
  Receive Date: 20081001
  Receipt Date: 20080919
  Transmission Date: 20090506
  Serious: Yes (Hospitalization)
  Sender: FDA-Public Use
  Company Number: NO-ROCHE-587062

PATIENT
  Age: 18 Year
  Sex: Female

DRUGS (2)
  1. ROACCUTAN [Suspect]
     Route: 048
     Dates: start: 20080601, end: 20080919
  2. BIRTH CONTROL PILLS NOS [Concomitant]
     Indication: CONTRACEPTION
     Dosage: DOSING REGIMEN 1/1 DAY.
     Route: 048

REACTIONS (5)
  - ABSCESS ORAL [None]
  - ERYTHEMA [None]
  - GINGIVAL DISORDER [None]
  - LYMPHOCYTE COUNT DECREASED [None]
  - PYREXIA [None]
